FAERS Safety Report 4570933-4 (Version None)
Quarter: 2005Q1

REPORT INFORMATION
  Report Type: 
  Country: None (occurrence: None)
  Receive Date: 20050204
  Receipt Date: 20040810
  Transmission Date: 20050727
  Serious: Yes (Life-Threatening, Hospitalization, Disabling, Other)
  Sender: FDA-Public Use
  Company Number: US-MERCK-0408USA00875

PATIENT
  Age: 60 Year
  Sex: Male
  Weight: 105 kg

DRUGS (15)
  1. ZOCOR [Suspect]
     Indication: HYPERCHOLESTEROLAEMIA
     Route: 048
     Dates: start: 20001101, end: 20020707
  2. ZOCOR [Suspect]
     Route: 048
     Dates: start: 20020707, end: 20030417
  3. ZOCOR [Suspect]
     Route: 048
     Dates: start: 20031117, end: 20040307
  4. ZOCOR [Suspect]
     Route: 048
     Dates: start: 20040308, end: 20040101
  5. ALLEGRA [Concomitant]
     Route: 065
  6. ATENOLOL [Concomitant]
     Route: 065
  7. FLONASE [Concomitant]
     Route: 065
  8. PREVACID [Concomitant]
     Route: 065
  9. COENZYME Q10 [Concomitant]
     Route: 065
  10. ASPIRIN [Concomitant]
     Route: 065
  11. CENTRUM [Concomitant]
     Route: 065
  12. GAMOLENIC ACID [Concomitant]
     Route: 065
  13. VITAMIN B COMPLEX [Concomitant]
     Route: 065
  14. VITAMIN E [Concomitant]
     Route: 065
  15. ZETIA [Concomitant]
     Route: 048
     Dates: start: 20040301

REACTIONS (44)
  - ABDOMINAL DISCOMFORT [None]
  - APPENDIX DISORDER [None]
  - ARTHRALGIA [None]
  - ASTHENIA [None]
  - ASTHMA [None]
  - ATELECTASIS [None]
  - BACK DISORDER [None]
  - BACK INJURY [None]
  - BACK PAIN [None]
  - BENIGN COLONIC NEOPLASM [None]
  - BLOOD CREATINE PHOSPHOKINASE INCREASED [None]
  - CATARACT [None]
  - CHEST DISCOMFORT [None]
  - CHRONIC OBSTRUCTIVE PULMONARY DISEASE [None]
  - CONSTIPATION [None]
  - COUGH [None]
  - DIARRHOEA [None]
  - DIVERTICULUM [None]
  - EPISTAXIS [None]
  - FINGER DEFORMITY [None]
  - GASTROOESOPHAGEAL REFLUX DISEASE [None]
  - HAEMORRHOIDS [None]
  - HEADACHE [None]
  - HEART RATE ABNORMAL [None]
  - HEPATIC ENZYME INCREASED [None]
  - HIATUS HERNIA [None]
  - HYPERTENSION [None]
  - LEUKOPENIA [None]
  - LIMB DISCOMFORT [None]
  - MUCOSAL MEMBRANE HYPERPLASIA [None]
  - MUSCLE SPASMS [None]
  - MYALGIA [None]
  - MYOSITIS [None]
  - PAIN IN EXTREMITY [None]
  - PHARYNGOLARYNGEAL PAIN [None]
  - PRURITUS [None]
  - RHINITIS ALLERGIC [None]
  - SKIN LESION [None]
  - SLEEP APNOEA SYNDROME [None]
  - UMBILICAL HERNIA [None]
  - URTICARIA [None]
  - VENTRICULAR EXTRASYSTOLES [None]
  - VISION BLURRED [None]
  - VOCAL CORD POLYP [None]
